FAERS Safety Report 6871248 (Version 4)
Quarter: 2013Q1

REPORT INFORMATION
  Report Type: Report from Study
  Country: ES (occurrence: ES)
  Receive Date: 20081231
  Receipt Date: 20130104
  Transmission Date: 20140127
  Serious: Yes (Hospitalization, Other)
  Sender: FDA-Public Use
  Company Number: ES-ABBOTT-08P-144-0494305-01

PATIENT
  Age: 26 Year
  Sex: Male
  Weight: 75 kg

DRUGS (3)
  1. HUMIRA [Suspect]
     Indication: CROHN^S DISEASE
     Route: 058
     Dates: start: 20080929, end: 20081110
  2. HIBOR [Concomitant]
     Indication: THROMBOSIS PROPHYLAXIS
     Dates: start: 20081118, end: 20081120
  3. AZATHIOPRIN [Concomitant]
     Indication: CROHN^S DISEASE
     Dates: start: 200401, end: 201111

REACTIONS (1)
  - Intestinal obstruction [Recovered/Resolved]
